FAERS Safety Report 5600336-2 (Version None)
Quarter: 2008Q1

REPORT INFORMATION
  Report Type: 
  Country: None (occurrence: None)
  Receive Date: 20080123
  Receipt Date: 20080118
  Transmission Date: 20080703
  Serious: Yes (Death)
  Sender: FDA-Public Use
  Company Number: JP-AVENTIS-200713549JP

PATIENT
  Age: 79 Year
  Sex: Male
  Weight: 54 kg

DRUGS (19)
  1. TAXOTERE [Suspect]
     Route: 041
     Dates: start: 20071205, end: 20071205
  2. TAXOTERE [Suspect]
     Route: 041
     Dates: start: 20071101, end: 20071101
  3. ESTRACYT                           /00327002/ [Suspect]
     Indication: PROSTATE CANCER
     Route: 048
     Dates: start: 20071204, end: 20071208
  4. ESTRACYT                           /00327002/ [Suspect]
     Dates: start: 20071031, end: 20071104
  5. ESTRACYT                           /00327002/ [Suspect]
  6. DECADRON [Concomitant]
     Indication: PROSTATE CANCER
     Route: 048
     Dates: start: 20071204, end: 20071208
  7. DECADRON [Concomitant]
  8. DECADRON [Concomitant]
     Route: 048
     Dates: start: 20071031, end: 20071104
  9. DECADRON [Concomitant]
     Dates: start: 20070807
  10. ASPIRIN [Concomitant]
     Route: 048
     Dates: start: 20071204, end: 20071214
  11. TAMSULOSIN HCL [Concomitant]
     Route: 048
     Dates: start: 20070911, end: 20071210
  12. VESICARE                           /01735901/ [Concomitant]
     Route: 048
     Dates: start: 20070911, end: 20071210
  13. VESTURIT L [Concomitant]
     Route: 048
  14. NIKORANMART [Concomitant]
     Dosage: DOSE: 2 TBLS/DAY
     Route: 048
  15. CORINAEL [Concomitant]
     Route: 048
  16. ITOROL [Concomitant]
     Route: 048
  17. RESMIT [Concomitant]
     Route: 048
  18. ALLOZYM [Concomitant]
     Route: 048
  19. FRANDOL [Concomitant]
     Dosage: DOSE: 1 SHEET/TIME

REACTIONS (1)
  - RENAL FAILURE ACUTE [None]
